FAERS Safety Report 17078932 (Version 1)
Quarter: 2019Q4

REPORT INFORMATION
  Report Type: Report from Study
  Country: US (occurrence: US)
  Receive Date: 20191127
  Receipt Date: 20191127
  Transmission Date: 20200122
  Serious: Yes (Other)
  Sender: FDA-Public Use
  Company Number: NVSC2019US046140

PATIENT
  Age: 9 Year
  Sex: Male
  Weight: 27.3 kg

DRUGS (5)
  1. CEFOXITIN [Suspect]
     Active Substance: CEFOXITIN SODIUM
     Indication: PRODUCT USED FOR UNKNOWN INDICATION
     Dosage: 1500 MG, Q8H
     Route: 042
     Dates: start: 20191026, end: 20191114
  2. AMIKACIN. [Concomitant]
     Active Substance: AMIKACIN
     Indication: PRODUCT USED FOR UNKNOWN INDICATION
     Dosage: 400 MG, TIW
     Route: 042
     Dates: start: 20190924, end: 20191112
  3. LAMPRENE [Suspect]
     Active Substance: CLOFAZIMINE
     Indication: MASTOIDITIS
     Dosage: 50 MG, QD (4 DAYS/WEEK)
     Route: 048
     Dates: start: 20191010
  4. LAMPRENE [Suspect]
     Active Substance: CLOFAZIMINE
     Indication: MYCOBACTERIUM ABSCESSUS INFECTION
     Dosage: 50 MG, QD (4 DAYS/WEEK)
     Route: 048
     Dates: start: 20191114
  5. BENADRYL [Concomitant]
     Active Substance: DIPHENHYDRAMINE HYDROCHLORIDE
     Indication: PRODUCT USED FOR UNKNOWN INDICATION
     Route: 065

REACTIONS (4)
  - Leukopenia [Recovered/Resolved]
  - Aspartate aminotransferase increased [Recovered/Resolved]
  - Rash [Recovering/Resolving]
  - Urticaria [Unknown]

NARRATIVE: CASE EVENT DATE: 20191112
